FAERS Safety Report 9259890 (Version 2)
Quarter: 2013Q2

REPORT INFORMATION
  Report Type: Spontaneous
  Country: JP (occurrence: JP)
  Receive Date: 20130429
  Receipt Date: 20130619
  Transmission Date: 20140414
  Serious: Yes (Hospitalization, Other)
  Sender: FDA-Public Use
  Company Number: JP-009507513-1304JPN015811

PATIENT
  Age: 76 Year
  Sex: Male

DRUGS (4)
  1. GLACTIV [Suspect]
     Indication: TYPE 2 DIABETES MELLITUS
     Dosage: (TABLETS 25MG, 50MG, 100MG) 50 MG, ONCE A DAY
     Route: 048
     Dates: end: 20130401
  2. AMARYL [Suspect]
     Dosage: 0.5 MG, QD
     Route: 048
  3. BAYASPIRIN [Suspect]
     Dosage: 100 MG, QD
     Route: 048
  4. ASPARA K [Suspect]

REACTIONS (3)
  - Hypokalaemia [Recovered/Resolved]
  - Ileus paralytic [Unknown]
  - Abdominal distension [None]
